FAERS Safety Report 9524492 (Version 1)
Quarter: 2013Q3

REPORT INFORMATION
  Report Type: Spontaneous
  Country: US (occurrence: US)
  Receive Date: 20130916
  Receipt Date: 20130916
  Transmission Date: 20140515
  Serious: No
  Sender: FDA-Public Use
  Company Number: US-PFIZER INC-2013265018

PATIENT
  Age: 83 Year
  Sex: Male
  Weight: 95.24 kg

DRUGS (5)
  1. LYRICA [Suspect]
     Indication: PARAESTHESIA
     Dosage: 50 MG, 3X/DAY
     Dates: start: 20130911
  2. LYRICA [Suspect]
     Indication: PAIN IN EXTREMITY
  3. CLONIDINE [Concomitant]
     Indication: HYPERTENSION
     Dosage: 0.3 MG, 2X/DAY
     Dates: start: 1989
  4. ALLOPURINOL [Concomitant]
     Dosage: 150 MG, 1X/DAY
  5. FOLIC ACID [Concomitant]
     Dosage: 1 DF, 1X/DAY

REACTIONS (2)
  - Hypoaesthesia [Not Recovered/Not Resolved]
  - Dizziness [Not Recovered/Not Resolved]
